FAERS Safety Report 13720240 (Version 3)
Quarter: 2017Q4

REPORT INFORMATION
  Report Type: Spontaneous
  Country: IT (occurrence: IT)
  Receive Date: 20170706
  Receipt Date: 20171103
  Transmission Date: 20180320
  Serious: Yes (Hospitalization)
  Sender: FDA-Public Use
  Company Number: IT-AUROBINDO-AUR-APL-2017-36388

PATIENT
  Age: 27 Year
  Sex: Female

DRUGS (1)
  1. AZITHROMYCIN 500MG FILM-COATED TABLET [Suspect]
     Active Substance: AZITHROMYCIN
     Indication: PALATAL OPERATION
     Dosage: 1 DF, DAILY
     Route: 048
     Dates: start: 20170531, end: 20170531

REACTIONS (1)
  - Tongue oedema [Recovered/Resolved]

NARRATIVE: CASE EVENT DATE: 20170531
